FAERS Safety Report 25712237 (Version 1)
Quarter: 2025Q3

REPORT INFORMATION
  Report Type: Spontaneous
  Country: EU (occurrence: EU)
  Receive Date: 20250821
  Receipt Date: 20250821
  Transmission Date: 20251020
  Serious: Yes (Hospitalization)
  Sender: MYLAN
  Company Number: None

PATIENT
  Age: 31 Year
  Sex: Female
  Weight: 42.8 kg

DRUGS (2)
  1. MYCOPHENOLATE MOFETIL [Suspect]
     Active Substance: MYCOPHENOLATE MOFETIL
     Indication: Interstitial lung disease
     Dosage: UNK UNK, BID (250 MG: 1 TABLET MORNING AND EVENING FOR 1 WEEK THEN 500 MG: 1 TABLET MORNING AND EVENING FOR 1 WEEK THEN 500 MG: 2 TABLETS MORNING AND EVENING 2/D)
     Dates: start: 20250606, end: 20250616
  2. BACTRIM [Suspect]
     Active Substance: SULFAMETHOXAZOLE\TRIMETHOPRIM
     Indication: Prophylaxis
     Dosage: 1 DOSAGE FORM, QD (400 MG/80 MG 1/DAY)
     Dates: start: 20250606, end: 20250616

REACTIONS (1)
  - Hepatic cytolysis [Recovering/Resolving]

NARRATIVE: CASE EVENT DATE: 20250612
